FAERS Safety Report 15824130 (Version 2)
Quarter: 2019Q2

REPORT INFORMATION
  Report Type: Spontaneous
  Country: FR (occurrence: FR)
  Receive Date: 20190114
  Receipt Date: 20190504
  Transmission Date: 20190711
  Serious: Yes (Death, Other)
  Sender: FDA-Public Use
  Company Number: FR-CELLTRION INC.-2019FR017638

PATIENT

DRUGS (4)
  1. RITUXIMAB (UNKNOWN) [Suspect]
     Active Substance: RITUXIMAB
     Indication: ECZEMA
     Dosage: UNK
  2. RITUXIMAB (UNKNOWN) [Suspect]
     Active Substance: RITUXIMAB
     Indication: CYTOPENIA
  3. AZATHIOPRINE. [Suspect]
     Active Substance: AZATHIOPRINE
     Indication: ECZEMA
     Dosage: UNK
  4. AZATHIOPRINE. [Suspect]
     Active Substance: AZATHIOPRINE
     Indication: CYTOPENIA

REACTIONS (2)
  - Product use in unapproved indication [Unknown]
  - Progressive multifocal leukoencephalopathy [Fatal]
